FAERS Safety Report 8510892-2 (Version None)
Quarter: 2012Q3

REPORT INFORMATION
  Report Type: 
  Country: None (occurrence: None)
  Receive Date: 20120710
  Receipt Date: 20120710
  Transmission Date: 20120928
  Serious: No
  Sender: FDA-Public Use
  Company Number: None

PATIENT

DRUGS (1)
  1. VIIBRYD [Suspect]
     Dosage: 10 MG 1X EACH 20 MG 1X EACH 30 MG 1X EACH

REACTIONS (1)
  - ABNORMAL BEHAVIOUR [None]
